FAERS Safety Report 11728755 (Version 4)
Quarter: 2017Q4

REPORT INFORMATION
  Report Type: Spontaneous
  Country: PR (occurrence: PR)
  Receive Date: 20151112
  Receipt Date: 20171206
  Transmission Date: 20180320
  Serious: Yes (Other)
  Sender: FDA-Public Use
  Company Number: PR-PFIZER INC-2015384733

PATIENT
  Age: 12 Year
  Sex: Male
  Weight: 34 kg

DRUGS (10)
  1. XYZAL [Concomitant]
     Active Substance: LEVOCETIRIZINE DIHYDROCHLORIDE
     Indication: HYPERSENSITIVITY
     Dosage: 5 MG, UNK
  2. GENOTROPIN [Suspect]
     Active Substance: SOMATROPIN
     Indication: GROWTH HORMONE DEFICIENCY
     Dosage: 1.8 MG, UNK (EVERY NIGHT FOR 6 DAYS)
     Dates: start: 201508, end: 20151013
  3. GENOTROPIN [Suspect]
     Active Substance: SOMATROPIN
     Dosage: 1.4 MG, UNK (6 DAYS A WEEK)
     Dates: start: 20160220
  4. GENOTROPIN [Suspect]
     Active Substance: SOMATROPIN
     Dosage: 2 MG, UNK; (2 MG A DAY, 12 MG CARTRIDGE, 2 MG INJECTION EVERY DAY FOR 6 OUT OF 7 DAYS)
     Dates: start: 20171117
  5. PROVENTIL [Concomitant]
     Active Substance: ALBUTEROL
     Indication: ASTHMA
     Dosage: UNK
  6. CLARITIN [Concomitant]
     Active Substance: LORATADINE
     Indication: HYPERSENSITIVITY
     Dosage: 10 MG, UNK
  7. GENOTROPIN [Suspect]
     Active Substance: SOMATROPIN
     Dosage: 1.4 MG, UNK (6 DAYS A WEEK)
     Route: 058
     Dates: start: 20150824, end: 20151011
  8. QVAR [Concomitant]
     Active Substance: BECLOMETHASONE DIPROPIONATE
     Indication: ASTHMA
     Dosage: UNK
  9. GENOTROPIN [Suspect]
     Active Substance: SOMATROPIN
     Dosage: 1.6
  10. GENOTROPIN [Suspect]
     Active Substance: SOMATROPIN
     Dosage: UNK
     Dates: start: 20150821

REACTIONS (5)
  - Drug dose omission [Not Recovered/Not Resolved]
  - Headache [Recovered/Resolved]
  - Nausea [Recovered/Resolved]
  - Vision blurred [Recovered/Resolved]
  - Cerebral cyst [Unknown]

NARRATIVE: CASE EVENT DATE: 20151011
